FAERS Safety Report 4547745-0 (Version None)
Quarter: 2005Q1

REPORT INFORMATION
  Report Type: 
  Country: None (occurrence: None)
  Receive Date: 20050107
  Receipt Date: 20050105
  Transmission Date: 20050727
  Serious: Yes (Death, Life-Threatening, Other)
  Sender: FDA-Public Use
  Company Number: BR-MERCK-0501BRA00012

PATIENT
  Age: 87 Year
  Sex: Male

DRUGS (2)
  1. VIOXX [Suspect]
     Indication: PAIN
     Route: 048
     Dates: start: 20040123, end: 20040129
  2. VIOXX [Suspect]
     Route: 048
     Dates: start: 20040115, end: 20040122

REACTIONS (1)
  - MYOCARDIAL INFARCTION [None]
